FAERS Safety Report 20572396 (Version 1)
Quarter: 2022Q1

REPORT INFORMATION
  Report Type: Report from Study
  Country: FR (occurrence: FR)
  Receive Date: 20220309
  Receipt Date: 20220309
  Transmission Date: 20220423
  Serious: Yes (Hospitalization)
  Sender: FDA-Public Use
  Company Number: FR-SERVIER-S22002251

PATIENT

DRUGS (8)
  1. PEGASPARGASE [Suspect]
     Active Substance: PEGASPARGASE
     Indication: Acute lymphocytic leukaemia
     Dosage: 2025 IU, D15, D43
     Route: 042
     Dates: start: 20211109, end: 20211207
  2. CYCLOPHOSPHAMIDE [Suspect]
     Active Substance: CYCLOPHOSPHAMIDE
     Indication: Acute lymphocytic leukaemia
     Dosage: 820 MG, D1, D29
     Route: 042
     Dates: start: 20211026, end: 20211123
  3. MERCAPTOPURINE [Suspect]
     Active Substance: MERCAPTOPURINE
     Indication: Acute lymphocytic leukaemia
     Dosage: 50 MG, D1 TO D14, D29 TO D42
     Route: 048
     Dates: start: 20211026, end: 20211206
  4. HYDROCORTISONE [Suspect]
     Active Substance: HYDROCORTISONE
     Indication: Acute lymphocytic leukaemia
     Dosage: 15 MG, D3, D31
     Route: 037
     Dates: start: 20211028, end: 20211125
  5. METHOTREXATE [Suspect]
     Active Substance: METHOTREXATE
     Indication: Acute lymphocytic leukaemia
     Dosage: 12 MG, D3, D31
     Route: 037
     Dates: start: 20211028, end: 20211125
  6. CYTARABINE [Suspect]
     Active Substance: CYTARABINE
     Indication: Acute lymphocytic leukaemia
     Dosage: 30 MG, D3, D31
     Route: 037
     Dates: start: 20211028, end: 20211125
  7. CYTARABINE [Suspect]
     Active Substance: CYTARABINE
     Dosage: 61 MG, D3 TO D6, D10 TO D13, D31 TO D34, D UNREADABLE DATE
     Route: 042
     Dates: start: 20211028, end: 20211205
  8. VINCRISTINE [Suspect]
     Active Substance: VINCRISTINE
     Indication: Acute lymphocytic leukaemia
     Dosage: 1.2 MG, D15, D22, D43, D50
     Route: 042
     Dates: start: 20211109, end: 20211214

REACTIONS (1)
  - Candida infection [Recovered/Resolved]

NARRATIVE: CASE EVENT DATE: 20211221
